FAERS Safety Report 14144743 (Version 3)
Quarter: 2018Q1

REPORT INFORMATION
  Report Type: Spontaneous
  Country: IE (occurrence: IE)
  Receive Date: 20171031
  Receipt Date: 20180301
  Transmission Date: 20180508
  Serious: Yes (Hospitalization)
  Sender: FDA-Public Use
  Company Number: IE-EMD SERONO-8197673

PATIENT
  Age: 32 Year
  Sex: Female

DRUGS (12)
  1. PREGNYL [Suspect]
     Active Substance: CHORIOGONADOTROPIN ALFA
     Indication: PRODUCT USED FOR UNKNOWN INDICATION
     Dosage: POWDER AND SOLVENT FOR SOLUTION
     Dates: start: 20170923
  2. ELTROXIN [Concomitant]
     Active Substance: LEVOTHYROXINE
     Indication: PRODUCT USED FOR UNKNOWN INDICATION
  3. FOLIC ACID. [Concomitant]
     Active Substance: FOLIC ACID
     Indication: PRODUCT USED FOR UNKNOWN INDICATION
  4. CRINONE [Concomitant]
     Active Substance: PROGESTERONE
     Indication: PRODUCT USED FOR UNKNOWN INDICATION
     Dosage: GEL 8% W/W
     Dates: start: 20170925
  5. ESTRADOT [Concomitant]
     Active Substance: ESTRADIOL
     Indication: PRODUCT USED FOR UNKNOWN INDICATION
     Dates: start: 20170831
  6. GONAL-F [Suspect]
     Active Substance: FOLLITROPIN
     Indication: PRODUCT USED FOR UNKNOWN INDICATION
     Dosage: POWDER + SOLVENT FOR SOLUTION FOR INJECTION
     Route: 058
     Dates: start: 20170912
  7. DIAZEMULS [Concomitant]
     Active Substance: DIAZEPAM
     Indication: SEDATION
     Route: 042
  8. CETROTIDE                          /01453602/ [Concomitant]
     Indication: PRODUCT USED FOR UNKNOWN INDICATION
     Dosage: POWDER AND SOLVENT FOR SOLUTION FOR INJECTION
     Dates: start: 20170916
  9. ASACOL [Concomitant]
     Active Substance: MESALAMINE
     Indication: PRODUCT USED FOR UNKNOWN INDICATION
  10. ELTROXIN [Concomitant]
     Active Substance: LEVOTHYROXINE
  11. PETHIDINE [Concomitant]
     Active Substance: MEPERIDINE
     Indication: SEDATION
     Route: 042
  12. ELTROXIN [Concomitant]
     Active Substance: LEVOTHYROXINE

REACTIONS (10)
  - Constipation [Unknown]
  - Tachycardia [Unknown]
  - Pleural effusion [Recovered/Resolved]
  - Hypotension [Unknown]
  - Lung consolidation [Unknown]
  - Dyspnoea [Unknown]
  - Ascites [Unknown]
  - Thyroid function test abnormal [Recovered/Resolved]
  - Ovarian hyperstimulation syndrome [Recovered/Resolved]
  - Cough [Unknown]

NARRATIVE: CASE EVENT DATE: 201710
